FAERS Safety Report 20231549 (Version 4)
Quarter: 2022Q2

REPORT INFORMATION
  Report Type: Spontaneous
  Country: JP (occurrence: JP)
  Receive Date: 20211227
  Receipt Date: 20220621
  Transmission Date: 20220721
  Serious: Yes (Other)
  Sender: FDA-Public Use
  Company Number: JP-NOVARTISPH-NVSJ2021JP021248

PATIENT
  Age: 8 Year
  Sex: Male
  Weight: 20.17 kg

DRUGS (105)
  1. CYCLOSPORINE [Suspect]
     Active Substance: CYCLOSPORINE
     Indication: Haemophagocytic lymphohistiocytosis
     Dosage: 3 MG/KG/DAY, 24 HOUR CONTINUOUS INFUSION
     Route: 041
     Dates: start: 20200611, end: 20200611
  2. PREDNISOLONE [Concomitant]
     Active Substance: PREDNISOLONE
     Indication: Acute respiratory distress syndrome
     Dosage: 2 MG/KG/DAY
     Route: 065
  3. MINOCYCLINE HYDROCHLORIDE [Concomitant]
     Active Substance: MINOCYCLINE HYDROCHLORIDE
     Indication: Acute respiratory distress syndrome
     Dosage: UNK
     Route: 065
  4. PHENOBARBITAL [Concomitant]
     Active Substance: PHENOBARBITAL
     Indication: Product used for unknown indication
     Dosage: 120 MG, BID AFTER BREAKFAST AND DINNER
     Route: 065
  5. DIAZEPAM [Concomitant]
     Active Substance: DIAZEPAM
     Indication: Product used for unknown indication
     Dosage: 12 MG BID AFTER BREAKFAST AND DINNER
     Route: 065
  6. DIETARY SUPPLEMENT\PROBIOTICS [Concomitant]
     Active Substance: DIETARY SUPPLEMENT\PROBIOTICS
     Indication: Product used for unknown indication
     Dosage: 3 G, TID AFTER EACH MEAL
     Route: 065
  7. POTASSIUM CHLORIDE [Concomitant]
     Active Substance: POTASSIUM CHLORIDE
     Indication: Product used for unknown indication
     Dosage: 2 G, TID AFTER EACH MEAL
     Route: 065
  8. FLUCONAZOLE [Concomitant]
     Active Substance: FLUCONAZOLE
     Indication: Product used for unknown indication
     Dosage: 100 MG, QD AFTER BREAKFAST
     Route: 065
  9. DIETARY SUPPLEMENT\PROBIOTICS [Concomitant]
     Active Substance: DIETARY SUPPLEMENT\PROBIOTICS
     Indication: Product used for unknown indication
     Dosage: 3 G, TID AFTER EACH MEAL
     Route: 065
  10. PROSTANDIN [Concomitant]
     Indication: Product used for unknown indication
     Dosage: 10 G, APPLIED ONCE DAILY, WOUND AND LEFT EAR
     Route: 065
  11. ZINC OXIDE [Concomitant]
     Active Substance: ZINC OXIDE
     Indication: Product used for unknown indication
     Dosage: 100 G, AFFECTED AREA
     Route: 065
  12. HEPARINOID [Concomitant]
     Indication: Product used for unknown indication
     Dosage: 125 G, APPLIED TWICE DAILY, ABDOMEN
     Route: 065
  13. PENTOSAN POLYSULFATE SODIUM [Concomitant]
     Active Substance: PENTOSAN POLYSULFATE SODIUM
     Indication: Product used for unknown indication
     Dosage: 50 G, APPLIED TWICE DAILY
     Route: 065
  14. FIBLAST [Concomitant]
     Indication: Product used for unknown indication
     Dosage: 1 SPRAY, QD
     Route: 065
  15. SULFAMETHOXAZOLE\TRIMETHOPRIM [Concomitant]
     Active Substance: SULFAMETHOXAZOLE\TRIMETHOPRIM
     Indication: Product used for unknown indication
     Dosage: 1.3 G, BID AFTER BREAKFAST AND DINNER (MON, WED, FRI)
     Route: 065
  16. ZINC OXIDE [Concomitant]
     Active Substance: ZINC OXIDE
     Indication: Product used for unknown indication
     Dosage: 200 G, APPLIED 4 TIMES DAILY, BUTTOCKS
     Route: 065
  17. SODIUM CHLORIDE [Concomitant]
     Active Substance: SODIUM CHLORIDE
     Indication: Product used for unknown indication
     Dosage: 200 ML
     Route: 041
     Dates: start: 20200611
  18. SODIUM CHLORIDE [Concomitant]
     Active Substance: SODIUM CHLORIDE
     Dosage: 2 ML
     Route: 041
     Dates: start: 20200611
  19. SODIUM CHLORIDE [Concomitant]
     Active Substance: SODIUM CHLORIDE
     Dosage: 500 ML
     Route: 041
     Dates: start: 20200611
  20. SODIUM CHLORIDE [Concomitant]
     Active Substance: SODIUM CHLORIDE
     Dosage: 2 ML
     Route: 041
     Dates: start: 20200611
  21. SODIUM CHLORIDE [Concomitant]
     Active Substance: SODIUM CHLORIDE
     Dosage: 60 ML
     Route: 041
     Dates: start: 20200611
  22. SODIUM CHLORIDE [Concomitant]
     Active Substance: SODIUM CHLORIDE
     Dosage: 20 ML
     Route: 041
     Dates: start: 20200611
  23. SODIUM CHLORIDE [Concomitant]
     Active Substance: SODIUM CHLORIDE
     Dosage: 10 ML
     Route: 041
     Dates: start: 20200611
  24. SODIUM CHLORIDE [Concomitant]
     Active Substance: SODIUM CHLORIDE
     Dosage: 300 ML
     Route: 041
     Dates: start: 20200611
  25. SODIUM CHLORIDE [Concomitant]
     Active Substance: SODIUM CHLORIDE
     Dosage: 20 ML
     Route: 041
     Dates: start: 20200611
  26. SODIUM CHLORIDE [Concomitant]
     Active Substance: SODIUM CHLORIDE
     Dosage: 2 ML
     Route: 041
     Dates: start: 20200611
  27. SODIUM CHLORIDE [Concomitant]
     Active Substance: SODIUM CHLORIDE
     Dosage: 2 ML
     Route: 041
     Dates: start: 20200611
  28. SODIUM CHLORIDE [Concomitant]
     Active Substance: SODIUM CHLORIDE
     Dosage: 2 ML
     Route: 041
     Dates: start: 20200611
  29. SODIUM CHLORIDE [Concomitant]
     Active Substance: SODIUM CHLORIDE
     Dosage: 2 ML
     Route: 041
     Dates: start: 20200611
  30. SODIUM CHLORIDE [Concomitant]
     Active Substance: SODIUM CHLORIDE
     Dosage: 2 ML
     Route: 041
     Dates: start: 20200612
  31. SODIUM CHLORIDE [Concomitant]
     Active Substance: SODIUM CHLORIDE
     Dosage: 2 ML
     Route: 041
     Dates: start: 20200612
  32. SODIUM CHLORIDE [Concomitant]
     Active Substance: SODIUM CHLORIDE
     Dosage: 20 ML
     Route: 041
     Dates: start: 20200612
  33. SODIUM CHLORIDE [Concomitant]
     Active Substance: SODIUM CHLORIDE
     Dosage: 500 ML
     Route: 041
     Dates: start: 20200612
  34. SODIUM CHLORIDE [Concomitant]
     Active Substance: SODIUM CHLORIDE
     Dosage: 2 ML
     Route: 041
     Dates: start: 20200612
  35. CLAFORAN [Concomitant]
     Active Substance: CEFOTAXIME SODIUM
     Indication: Product used for unknown indication
     Dosage: 1000 MG
     Route: 041
     Dates: start: 20200611
  36. CLAFORAN [Concomitant]
     Active Substance: CEFOTAXIME SODIUM
     Dosage: 1000 MG
     Route: 041
     Dates: start: 20200611
  37. CLAFORAN [Concomitant]
     Active Substance: CEFOTAXIME SODIUM
     Dosage: 1000 MG
     Route: 041
     Dates: start: 20200611
  38. CLAFORAN [Concomitant]
     Active Substance: CEFOTAXIME SODIUM
     Dosage: 1000 MG
     Route: 041
     Dates: start: 20200612
  39. CLAFORAN [Concomitant]
     Active Substance: CEFOTAXIME SODIUM
     Dosage: 1000 MG
     Route: 041
     Dates: start: 20200612
  40. CLAFORAN [Concomitant]
     Active Substance: CEFOTAXIME SODIUM
     Dosage: 1000 MG
     Route: 041
     Dates: start: 20200612
  41. SODIUM CHLORIDE [Concomitant]
     Active Substance: SODIUM CHLORIDE
     Indication: Product used for unknown indication
     Dosage: 10 ML
     Route: 041
     Dates: start: 20200611
  42. SODIUM CHLORIDE [Concomitant]
     Active Substance: SODIUM CHLORIDE
     Dosage: 30 ML
     Route: 041
     Dates: start: 20200611
  43. SODIUM CHLORIDE [Concomitant]
     Active Substance: SODIUM CHLORIDE
     Dosage: 5 ML
     Route: 041
     Dates: start: 20200611
  44. SODIUM CHLORIDE [Concomitant]
     Active Substance: SODIUM CHLORIDE
     Dosage: 10 ML
     Route: 041
     Dates: start: 20200611
  45. SODIUM CHLORIDE [Concomitant]
     Active Substance: SODIUM CHLORIDE
     Dosage: 10 ML
     Route: 041
     Dates: start: 20200612
  46. SODIUM CHLORIDE [Concomitant]
     Active Substance: SODIUM CHLORIDE
     Dosage: 30 ML
     Route: 041
     Dates: start: 20200612
  47. SODIUM CHLORIDE [Concomitant]
     Active Substance: SODIUM CHLORIDE
     Dosage: 10 ML
     Route: 041
     Dates: start: 20200612
  48. MIDAZOLAM [Concomitant]
     Active Substance: MIDAZOLAM
     Indication: Product used for unknown indication
     Dosage: 60 MG
     Route: 041
     Dates: start: 20200611
  49. MIDAZOLAM [Concomitant]
     Active Substance: MIDAZOLAM
     Dosage: 60 MG
     Route: 041
     Dates: start: 20200611
  50. MIDAZOLAM [Concomitant]
     Active Substance: MIDAZOLAM
     Dosage: 60 MG
     Route: 041
     Dates: start: 20200612
  51. MIDAZOLAM [Concomitant]
     Active Substance: MIDAZOLAM
     Dosage: 60 MG
     Route: 041
     Dates: start: 20200612
  52. DEXTROSE [Concomitant]
     Active Substance: DEXTROSE
     Indication: Product used for unknown indication
     Dosage: 13 ML
     Route: 041
     Dates: start: 20200611
  53. DEXTROSE [Concomitant]
     Active Substance: DEXTROSE
     Dosage: 13 ML
     Route: 041
     Dates: start: 20200611
  54. DEXTROSE [Concomitant]
     Active Substance: DEXTROSE
     Dosage: 43.5 ML
     Route: 041
     Dates: start: 20200611
  55. DEXTROSE [Concomitant]
     Active Substance: DEXTROSE
     Dosage: 13 ML
     Route: 041
     Dates: start: 20200611
  56. DEXTROSE [Concomitant]
     Active Substance: DEXTROSE
     Dosage: 13 ML
     Route: 041
     Dates: start: 20200611
  57. DEXTROSE [Concomitant]
     Active Substance: DEXTROSE
     Dosage: 32.5 ML
     Route: 041
     Dates: start: 20200611
  58. DEXTROSE [Concomitant]
     Active Substance: DEXTROSE
     Dosage: 13 ML
     Route: 041
     Dates: start: 20200612
  59. DEXTROSE [Concomitant]
     Active Substance: DEXTROSE
     Dosage: 13 ML
     Route: 041
     Dates: start: 20200612
  60. DEXTROSE [Concomitant]
     Active Substance: DEXTROSE
     Dosage: 13 ML
     Route: 041
     Dates: start: 20200612
  61. DEXTROSE [Concomitant]
     Active Substance: DEXTROSE
     Dosage: 13 ML
     Route: 041
     Dates: start: 20200612
  62. FENTANYL [Concomitant]
     Active Substance: FENTANYL
     Indication: Product used for unknown indication
     Dosage: 600 UG
     Route: 041
     Dates: start: 20200611
  63. FENTANYL [Concomitant]
     Active Substance: FENTANYL
     Dosage: 600 UG
     Route: 041
     Dates: start: 20200611
  64. FENTANYL [Concomitant]
     Active Substance: FENTANYL
     Dosage: 600 UG
     Route: 041
     Dates: start: 20200612
  65. FENTANYL [Concomitant]
     Active Substance: FENTANYL
     Dosage: 600 UG
     Route: 041
     Dates: start: 20200612
  66. PRECEDEX [Concomitant]
     Active Substance: DEXMEDETOMIDINE HYDROCHLORIDE
     Indication: Haemophagocytic lymphohistiocytosis
     Dosage: 200 UG
     Route: 041
     Dates: start: 20200611
  67. PRECEDEX [Concomitant]
     Active Substance: DEXMEDETOMIDINE HYDROCHLORIDE
     Dosage: 200 UG
     Route: 041
     Dates: start: 20200611
  68. PRECEDEX [Concomitant]
     Active Substance: DEXMEDETOMIDINE HYDROCHLORIDE
     Dosage: 200 UG
     Route: 041
     Dates: start: 20200612
  69. PRECEDEX [Concomitant]
     Active Substance: DEXMEDETOMIDINE HYDROCHLORIDE
     Dosage: 200 UG
     Route: 041
     Dates: start: 20200612
  70. PRECEDEX [Concomitant]
     Active Substance: DEXMEDETOMIDINE HYDROCHLORIDE
     Dosage: 200 UG
     Route: 041
     Dates: start: 20200612
  71. AMINO ACIDS\DEXTROSE\ELECTROLYTES NOS\MINERALS\VITAMINS [Concomitant]
     Active Substance: AMINO ACIDS\DEXTROSE\ELECTROLYTES NOS\MINERALS\VITAMINS
     Indication: Product used for unknown indication
     Dosage: 1000 ML
     Route: 041
     Dates: start: 20200611
  72. AMINO ACIDS\DEXTROSE\ELECTROLYTES NOS\MINERALS\VITAMINS [Concomitant]
     Active Substance: AMINO ACIDS\DEXTROSE\ELECTROLYTES NOS\MINERALS\VITAMINS
     Dosage: 1000 ML
     Route: 041
     Dates: start: 20200611
  73. AMINO ACIDS\DEXTROSE\ELECTROLYTES NOS\MINERALS\VITAMINS [Concomitant]
     Active Substance: AMINO ACIDS\DEXTROSE\ELECTROLYTES NOS\MINERALS\VITAMINS
     Dosage: 1000 ML
     Route: 041
     Dates: start: 20200612
  74. NOREPINEPHRINE [Concomitant]
     Active Substance: NOREPINEPHRINE
     Indication: Product used for unknown indication
     Dosage: 6.5 MG
     Route: 041
     Dates: start: 20200611
  75. ALBUMIN HUMAN [Concomitant]
     Active Substance: ALBUMIN HUMAN
     Indication: Product used for unknown indication
     Dosage: 250 ML
     Route: 041
     Dates: start: 20200611
  76. ALBUMIN HUMAN [Concomitant]
     Active Substance: ALBUMIN HUMAN
     Dosage: 250 ML
     Route: 041
     Dates: start: 20200611
  77. ALBUMIN HUMAN [Concomitant]
     Active Substance: ALBUMIN HUMAN
     Dosage: 250 ML
     Route: 041
     Dates: start: 20200612
  78. GRANISETRON [Concomitant]
     Active Substance: GRANISETRON
     Indication: Product used for unknown indication
     Dosage: 0.8 MG
     Route: 041
     Dates: start: 20200611
  79. FOSAPREPITANT [Concomitant]
     Active Substance: FOSAPREPITANT
     Indication: Product used for unknown indication
     Dosage: 150 MG
     Route: 041
     Dates: start: 20200611
  80. DEXAMETHASONE SODIUM PHOSPHATE [Concomitant]
     Active Substance: DEXAMETHASONE SODIUM PHOSPHATE
     Indication: Product used for unknown indication
     Dosage: 4.4 MG
     Route: 041
     Dates: start: 20200611
  81. DEXAMETHASONE SODIUM PHOSPHATE [Concomitant]
     Active Substance: DEXAMETHASONE SODIUM PHOSPHATE
     Dosage: 4.4 MG
     Route: 041
     Dates: start: 20200611
  82. DEXAMETHASONE SODIUM PHOSPHATE [Concomitant]
     Active Substance: DEXAMETHASONE SODIUM PHOSPHATE
     Dosage: 4.4 MG
     Route: 041
     Dates: start: 20200612
  83. DEXAMETHASONE SODIUM PHOSPHATE [Concomitant]
     Active Substance: DEXAMETHASONE SODIUM PHOSPHATE
     Dosage: 4.4 MG
     Route: 041
     Dates: start: 20200612
  84. MICAFUNGIN SODIUM [Concomitant]
     Active Substance: MICAFUNGIN SODIUM
     Indication: Product used for unknown indication
     Dosage: 50 MG
     Route: 041
     Dates: start: 20200611
  85. MICAFUNGIN SODIUM [Concomitant]
     Active Substance: MICAFUNGIN SODIUM
     Dosage: 50 MG
     Route: 041
     Dates: start: 20200612
  86. GASTER [Concomitant]
     Active Substance: FAMOTIDINE
     Indication: Product used for unknown indication
     Dosage: 10 MG
     Route: 041
     Dates: start: 20200611
  87. GASTER [Concomitant]
     Active Substance: FAMOTIDINE
     Dosage: 10 MG
     Route: 041
     Dates: start: 20200611
  88. GASTER [Concomitant]
     Active Substance: FAMOTIDINE
     Dosage: 10 MG
     Route: 041
     Dates: start: 20200612
  89. GASTER [Concomitant]
     Active Substance: FAMOTIDINE
     Dosage: 10 MG
     Route: 041
     Dates: start: 20200612
  90. MALTOSE [Concomitant]
     Active Substance: MALTOSE
     Indication: Product used for unknown indication
     Dosage: 200 ML
     Route: 013
     Dates: start: 20200611
  91. MALTOSE [Concomitant]
     Active Substance: MALTOSE
     Dosage: 30 ML
     Route: 041
     Dates: start: 20200612
  92. HEPARIN [Concomitant]
     Active Substance: HEPARIN SODIUM
     Indication: Product used for unknown indication
     Dosage: 5000 UNITS
     Route: 041
     Dates: start: 20200611
  93. HEPARIN [Concomitant]
     Active Substance: HEPARIN SODIUM
     Dosage: 5000 UNITS, 0.4 ML
     Route: 013
     Dates: start: 20200611
  94. HEPARIN [Concomitant]
     Active Substance: HEPARIN SODIUM
     Dosage: 5000 UNITS
     Route: 041
     Dates: start: 20200612
  95. HEPARIN [Concomitant]
     Active Substance: HEPARIN SODIUM
     Dosage: 5000 UNITS, 0.06 ML
     Route: 041
     Dates: start: 20200612
  96. ETOPOSIDE [Concomitant]
     Active Substance: ETOPOSIDE
     Indication: Haemophagocytic lymphohistiocytosis
     Dosage: 136 MG
     Route: 041
     Dates: start: 20200611
  97. CALCIUM CHLORIDE\MAGNESIUM CHLORIDE\POTASSIUM CHLORIDE\SODIUM ACETATE\ [Concomitant]
     Active Substance: CALCIUM CHLORIDE\MAGNESIUM CHLORIDE\POTASSIUM CHLORIDE\SODIUM ACETATE\SODIUM CHLORIDE
     Indication: Product used for unknown indication
     Dosage: 500 ML
     Route: 041
     Dates: start: 20200611
  98. CALCIUM CHLORIDE\MAGNESIUM CHLORIDE\POTASSIUM CHLORIDE\SODIUM ACETATE\ [Concomitant]
     Active Substance: CALCIUM CHLORIDE\MAGNESIUM CHLORIDE\POTASSIUM CHLORIDE\SODIUM ACETATE\SODIUM CHLORIDE
     Dosage: 500 ML
     Route: 041
     Dates: start: 20200612
  99. DOPAMINE HYDROCHLORIDE [Concomitant]
     Active Substance: DOPAMINE HYDROCHLORIDE
     Indication: Product used for unknown indication
     Dosage: 350 MG
     Route: 041
     Dates: start: 20200611
  100. ACOALAN [Concomitant]
     Indication: Product used for unknown indication
     Dosage: 600 UNITS
     Route: 041
     Dates: start: 20200611
  101. ACOALAN [Concomitant]
     Dosage: 600 UNITS
     Route: 041
     Dates: start: 20200611
  102. AMINIC [Concomitant]
     Indication: Product used for unknown indication
     Dosage: 100 ML
     Route: 041
     Dates: start: 20200611
  103. HAPTOGLOBIN [Concomitant]
     Indication: Product used for unknown indication
     Dosage: 2000 UNITS
     Route: 041
     Dates: start: 20200611
  104. LASIX [Concomitant]
     Active Substance: FUROSEMIDE
     Indication: Product used for unknown indication
     Dosage: 5 MG
     Route: 041
     Dates: start: 20200611
  105. LASIX [Concomitant]
     Active Substance: FUROSEMIDE
     Dosage: 5 MG
     Route: 041
     Dates: start: 20200611

REACTIONS (4)
  - Haemolytic anaemia [Recovered/Resolved]
  - Haematuria [Unknown]
  - Renal impairment [Recovered/Resolved]
  - Product use in unapproved indication [Unknown]

NARRATIVE: CASE EVENT DATE: 20200611
